FAERS Safety Report 25859030 (Version 1)
Quarter: 2025Q3

REPORT INFORMATION
  Report Type: Spontaneous
  Country: EU (occurrence: EU)
  Receive Date: 20250929
  Receipt Date: 20250929
  Transmission Date: 20251020
  Serious: Yes (Disabling)
  Sender: ARGENX BVBA
  Company Number: EU-ARGENX-2025-ARGX-DE012957

PATIENT

DRUGS (1)
  1. VYVGART [Suspect]
     Active Substance: EFGARTIGIMOD ALFA-FCAB
     Indication: Chronic inflammatory demyelinating polyradiculoneuropathy
     Route: 058

REACTIONS (2)
  - Wheelchair user [Unknown]
  - Therapy non-responder [Unknown]
